FAERS Safety Report 25717342 (Version 2)
Quarter: 2025Q4

REPORT INFORMATION
  Report Type: Spontaneous
  Country: US (occurrence: US)
  Receive Date: 20250822
  Receipt Date: 20251227
  Transmission Date: 20260118
  Serious: No
  Sender: SANOFI AVENTIS
  Company Number: US-SA-2025SA249265

PATIENT
  Sex: Female
  Weight: 81.82 kg

DRUGS (18)
  1. DUPIXENT [Suspect]
     Active Substance: DUPILUMAB
     Indication: Bronchitis chronic
     Dosage: 300 MG, QOW
     Route: 058
  2. DUPIXENT [Suspect]
     Active Substance: DUPILUMAB
     Indication: Asthma
  3. FUROSEMIDE [Concomitant]
     Active Substance: FUROSEMIDE
  4. LISINOPRIL [Concomitant]
     Active Substance: LISINOPRIL
  5. BREZTRI [Concomitant]
     Active Substance: BUDESONIDE\FORMOTEROL\GLYCOPYRROLATE
  6. TRIAMCINOLONE ACETONIDE [Concomitant]
     Active Substance: TRIAMCINOLONE ACETONIDE
  7. FLUOCINOLONE ACETONIDE [Concomitant]
     Active Substance: FLUOCINOLONE ACETONIDE
  8. EPINEPHRINE [EPINEPHRINE HYDROCHLORIDE] [Concomitant]
  9. NUCALA [Concomitant]
     Active Substance: MEPOLIZUMAB
  10. ASPIRIN [Concomitant]
     Active Substance: ASPIRIN
  11. AIRSUPRA [BUDESONIDE;SALBUTAMOL] [Concomitant]
  12. ACETAMINOPHEN\HYDROCODONE [Concomitant]
     Active Substance: ACETAMINOPHEN\HYDROCODONE
  13. KETOCONAZOLE [Concomitant]
     Active Substance: KETOCONAZOLE
  14. AMLODIPINE BESYLATE [Concomitant]
     Active Substance: AMLODIPINE BESYLATE
  15. HYDROCORTISONE [Concomitant]
     Active Substance: HYDROCORTISONE
  16. ROSUVASTATIN CALCIUM [Concomitant]
     Active Substance: ROSUVASTATIN CALCIUM
  17. NYSTATIN [Concomitant]
     Active Substance: NYSTATIN
  18. MORPHINE SULFATE [Concomitant]
     Active Substance: MORPHINE SULFATE

REACTIONS (8)
  - Psoriasis [Unknown]
  - Skin exfoliation [Unknown]
  - Skin ulcer [Unknown]
  - Visual impairment [Unknown]
  - Wound dehiscence [Unknown]
  - Incisional hernia [Unknown]
  - Condition aggravated [Unknown]
  - Product use in unapproved indication [Unknown]
